FAERS Safety Report 23833746 (Version 1)
Quarter: 2024Q2

REPORT INFORMATION
  Report Type: Spontaneous
  Country: US (occurrence: US)
  Receive Date: 20240509
  Receipt Date: 20240509
  Transmission Date: 20240715
  Serious: No
  Sender: FDA-Public Use
  Company Number: US-NOVAST LABORATORIES INC.-2023NOV000330

PATIENT

DRUGS (1)
  1. ELINEST [Suspect]
     Active Substance: ETHINYL ESTRADIOL\NORGESTREL
     Indication: Contraception
     Dosage: ONE TABLET, QD
     Route: 048
     Dates: start: 202303

REACTIONS (3)
  - Product dose omission issue [Unknown]
  - Product packaging difficult to open [Unknown]
  - Product physical issue [Unknown]

NARRATIVE: CASE EVENT DATE: 20231028
